FAERS Safety Report 5204044-1 (Version None)
Quarter: 2007Q1

REPORT INFORMATION
  Report Type: 
  Country: None (occurrence: None)
  Receive Date: 20070110
  Receipt Date: 20051102
  Transmission Date: 20070707
  Serious: No
  Sender: FDA-Public Use
  Company Number: US-BRISTOL-MYERS SQUIBB COMPANY-13165683

PATIENT
  Sex: Male
  Weight: 98 kg

DRUGS (4)
  1. ABILIFY [Suspect]
     Indication: DEPRESSION
     Dosage: 1/2 TAB DAILY
     Route: 048
  2. EFFEXOR XR [Concomitant]
  3. ATENOLOL [Concomitant]
  4. AVANDIA [Concomitant]

REACTIONS (1)
  - TREMOR [None]
